FAERS Safety Report 10475696 (Version 8)
Quarter: 2015Q3

REPORT INFORMATION
  Report Type: Spontaneous
  Country: US (occurrence: US)
  Receive Date: 20140925
  Receipt Date: 20150811
  Transmission Date: 20151125
  Serious: Yes (Life-Threatening, Hospitalization, Other)
  Sender: FDA-Public Use
  Company Number: US-009507513-1409USA012709

PATIENT
  Sex: Female
  Weight: 60.77 kg

DRUGS (6)
  1. JANUMET [Suspect]
     Active Substance: METFORMIN HYDROCHLORIDE\SITAGLIPTIN PHOSPHATE
     Indication: TYPE 2 DIABETES MELLITUS
     Dosage: 50 MG, QD
     Route: 048
     Dates: start: 20090206, end: 20090502
  2. BYETTA [Suspect]
     Active Substance: EXENATIDE
     Indication: PRODUCT USED FOR UNKNOWN INDICATION
     Dosage: 5 MICROGRAM, QD
     Route: 048
     Dates: start: 20110412, end: 20120512
  3. VICTOZA [Suspect]
     Active Substance: LIRAGLUTIDE
     Dosage: 1.8 MG, QD
     Route: 058
     Dates: start: 20120918
  4. MAGNESIUM (UNSPECIFIED) [Concomitant]
     Active Substance: MAGNESIUM
     Indication: TYPE 2 DIABETES MELLITUS
     Dosage: UNK
     Dates: start: 2009, end: 2010
  5. VICTOZA [Suspect]
     Active Substance: LIRAGLUTIDE
     Indication: PRODUCT USED FOR UNKNOWN INDICATION
     Dosage: 18 MG/ 3 ML, QD
     Route: 048
     Dates: start: 20110110, end: 20121027
  6. OMEGA-3 MARINE TRIGLYCERIDES [Concomitant]
     Active Substance: FISH OIL
     Indication: BLOOD TRIGLYCERIDES ABNORMAL
     Dosage: UNK
     Dates: start: 2009, end: 2010

REACTIONS (81)
  - Nausea [Not Recovered/Not Resolved]
  - Abdominal discomfort [Unknown]
  - Helicobacter infection [Unknown]
  - Ear infection [Unknown]
  - Hypertension [Unknown]
  - Dyspnoea exertional [Not Recovered/Not Resolved]
  - Pneumonia [Unknown]
  - Gastritis [Unknown]
  - Oropharyngeal pain [Unknown]
  - Cataract [Unknown]
  - Epistaxis [Unknown]
  - Drug ineffective [Unknown]
  - Drug hypersensitivity [Unknown]
  - Abdominal pain [Unknown]
  - Organ preservation [Unknown]
  - Deafness neurosensory [Unknown]
  - Gastric ulcer [Unknown]
  - Renal cyst [Unknown]
  - Colon adenoma [Unknown]
  - Diverticulitis [Unknown]
  - Angina pectoris [Unknown]
  - Palpitations [Recovered/Resolved]
  - Pancreatitis relapsing [Unknown]
  - Sleep apnoea syndrome [Unknown]
  - Diabetes mellitus inadequate control [Unknown]
  - Arrhythmia [Unknown]
  - Blood pressure inadequately controlled [Recovered/Resolved]
  - Tinnitus [Unknown]
  - Constipation [Unknown]
  - Ulcer [Unknown]
  - Hypertensive heart disease [Unknown]
  - Type 1 diabetes mellitus [Unknown]
  - Hepatic steatosis [Unknown]
  - Arteriosclerosis coronary artery [Unknown]
  - Adverse drug reaction [Unknown]
  - Interstitial lung disease [Unknown]
  - Spinal osteoarthritis [Unknown]
  - Duodenitis [Unknown]
  - Venous thrombosis [Unknown]
  - Microcytic anaemia [Unknown]
  - Vascular pseudoaneurysm [Unknown]
  - Cardiovascular function test abnormal [Unknown]
  - Pancreatic carcinoma metastatic [Unknown]
  - Pancreatitis acute [Unknown]
  - Chronic obstructive pulmonary disease [Not Recovered/Not Resolved]
  - Blood triglycerides increased [Unknown]
  - Anxiety [Unknown]
  - Skin lesion [Unknown]
  - Iron deficiency anaemia [Unknown]
  - Peptic ulcer [Unknown]
  - Dysgeusia [Unknown]
  - Pruritus [Unknown]
  - Atrial tachycardia [Unknown]
  - Spinal osteoarthritis [Unknown]
  - Cataract operation [Unknown]
  - Flank pain [Unknown]
  - Skin lesion excision [Unknown]
  - Dyspnoea [Unknown]
  - Vitamin D deficiency [Unknown]
  - Portal vein thrombosis [Unknown]
  - Radiotherapy to pancreas [Unknown]
  - Pulmonary mass [Unknown]
  - Melaena [Unknown]
  - Panic disorder [Unknown]
  - Vitamin B12 decreased [Unknown]
  - Rash [Unknown]
  - Lymphadenectomy [Unknown]
  - Gastrooesophageal reflux disease [Unknown]
  - Hypercholesterolaemia [Unknown]
  - Splenectomy [Unknown]
  - Systemic inflammatory response syndrome [Unknown]
  - Gastric ulcer haemorrhage [Unknown]
  - Splenomegaly [Unknown]
  - Poor quality sleep [Unknown]
  - Haemorrhagic anaemia [Not Recovered/Not Resolved]
  - Gastric antral vascular ectasia [Unknown]
  - Blood glucose increased [Unknown]
  - Duodenal ulcer haemorrhage [Not Recovered/Not Resolved]
  - Somnolence [Unknown]
  - Pulmonary mass [Unknown]
  - Dysphagia [Unknown]

NARRATIVE: CASE EVENT DATE: 2009
